FAERS Safety Report 25916948 (Version 1)
Quarter: 2025Q4

REPORT INFORMATION
  Report Type: Spontaneous
  Country: US (occurrence: US)
  Receive Date: 20251014
  Receipt Date: 20251014
  Transmission Date: 20260118
  Serious: Yes (Hospitalization)
  Sender: INSMED
  Company Number: US-INSMED, INC.-2025-04479-US

PATIENT
  Sex: Female

DRUGS (1)
  1. BRINSUPRI [Suspect]
     Active Substance: BRENSOCATIB
     Indication: Bronchiectasis
     Dosage: UNK, UNK
     Route: 048

REACTIONS (2)
  - Infection [Not Recovered/Not Resolved]
  - Rash [Not Recovered/Not Resolved]
